FAERS Safety Report 8347248-1 (Version None)
Quarter: 2012Q2

REPORT INFORMATION
  Report Type: 
  Country: None (occurrence: None)
  Receive Date: 20120509
  Receipt Date: 20120502
  Transmission Date: 20120825
  Serious: Yes (Other)
  Sender: FDA-Public Use
  Company Number: US-ASTRAZENECA-2012SE28309

PATIENT
  Age: 62 Year
  Sex: Female

DRUGS (2)
  1. NEXIUM [Suspect]
     Indication: HIATUS HERNIA
     Route: 048
  2. NEXIUM [Suspect]
     Route: 048

REACTIONS (5)
  - OFF LABEL USE [None]
  - MALAISE [None]
  - INTENTIONAL DRUG MISUSE [None]
  - TRIGEMINAL NEURALGIA [None]
  - PAIN [None]
